FAERS Safety Report 4373683-2 (Version None)
Quarter: 2004Q1

REPORT INFORMATION
  Report Type: 
  Country: None (occurrence: None)
  Receive Date: 20040305
  Receipt Date: 20040112
  Transmission Date: 20041129
  Serious: Yes (Other)
  Sender: FDA-Public Use
  Company Number: 2004UW00554

PATIENT
  Age: 76 Year
  Sex: Female
  Weight: 58.9676 kg

DRUGS (4)
  1. CRESTOR [Suspect]
     Indication: BLOOD CHOLESTEROL INCREASED
     Dosage: 5 MG QD PO
     Route: 048
  2. TENORMIN [Concomitant]
  3. NORVASC [Concomitant]
  4. PREDNISONE [Concomitant]

REACTIONS (2)
  - FLATULENCE [None]
  - LOOSE STOOLS [None]
